FAERS Safety Report 5274549-6 (Version None)
Quarter: 2007Q1

REPORT INFORMATION
  Report Type: 
  Country: None (occurrence: None)
  Receive Date: 20070320
  Receipt Date: 20070309
  Transmission Date: 20070707
  Serious: Yes (Life-Threatening)
  Sender: FDA-Public Use
  Company Number: 2007AL001013

PATIENT
  Age: 50 Year
  Sex: Female

DRUGS (3)
  1. FLUOXETINE [Suspect]
     Indication: DEPRESSION
     Dosage: 20 MG; QD; PO
     Route: 048
     Dates: start: 20061109, end: 20061215
  2. ZOLMITRIPTAN [Concomitant]
  3. ESTROGENIC SUBSTANCE [Concomitant]

REACTIONS (7)
  - ANAEMIA [None]
  - C-REACTIVE PROTEIN INCREASED [None]
  - JOINT SWELLING [None]
  - PLATELET COUNT DECREASED [None]
  - RASH [None]
  - RED BLOOD CELL SEDIMENTATION RATE INCREASED [None]
  - SYNOVITIS [None]
